FAERS Safety Report 7733631-1 (Version None)
Quarter: 2011Q3

REPORT INFORMATION
  Report Type: 
  Country: None (occurrence: None)
  Receive Date: 20110907
  Receipt Date: 20110906
  Transmission Date: 20111222
  Serious: Yes (Life-Threatening, Hospitalization)
  Sender: FDA-Public Use
  Company Number: TW-BRISTOL-MYERS SQUIBB COMPANY-15880362

PATIENT
  Age: 61 Year
  Sex: Male
  Weight: 55 kg

DRUGS (3)
  1. CETUXIMAB [Suspect]
     Indication: GASTROOESOPHAGEAL CANCER
     Dosage: RECENT INF:08DEC08 RECENT INF:5 CETUXIMAB 5MG/ML IV INFUSION
     Route: 042
     Dates: start: 20081110, end: 20081208
  2. CISPLATIN [Suspect]
     Indication: GASTROOESOPHAGEAL CANCER
     Dosage: DOSAGE: ON DAY 1 OF CYCLE RECENT INF:01DEC08.TOTAL NO OF COURSE-2.
     Route: 042
     Dates: start: 20081110, end: 20081201
  3. XELODA [Suspect]
     Indication: GASTROOESOPHAGEAL CANCER
     Dosage: RECENT DOSE:01DEC08. DOSAGE: ON DAY 1-15 TABS.TOTAL NO OF COURSE-2.
     Route: 048
     Dates: start: 20081110

REACTIONS (2)
  - HYPOALBUMINAEMIA [None]
  - THROMBOCYTOPENIA [None]
